FAERS Safety Report 11247570 (Version 1)
Quarter: 2015Q3

REPORT INFORMATION
  Report Type: Spontaneous
  Country: US (occurrence: US)
  Receive Date: 20150708
  Receipt Date: 20150708
  Transmission Date: 20151125
  Serious: No
  Sender: FDA-Public Use
  Company Number: US-PFIZER INC-2015223386

PATIENT
  Age: 51 Year
  Sex: Male

DRUGS (5)
  1. BUPROPION. [Suspect]
     Active Substance: BUPROPION
     Dosage: UNK
  2. BUSPIRONE [Concomitant]
     Active Substance: BUSPIRONE HYDROCHLORIDE
     Dosage: UNK
  3. CHANTIX [Suspect]
     Active Substance: VARENICLINE TARTRATE
     Indication: SMOKING CESSATION THERAPY
     Dosage: 0.5 MG, 1X/DAY
     Dates: start: 20150628
  4. OMEPRAZOLE. [Concomitant]
     Active Substance: OMEPRAZOLE
     Dosage: UNK
  5. CARVEDILOL. [Concomitant]
     Active Substance: CARVEDILOL
     Indication: HYPERTENSION
     Dosage: UNK

REACTIONS (6)
  - Paraesthesia [Not Recovered/Not Resolved]
  - Fatigue [Unknown]
  - Agitation [Not Recovered/Not Resolved]
  - Lethargy [Not Recovered/Not Resolved]
  - Anxiety [Unknown]
  - Feeling abnormal [Unknown]

NARRATIVE: CASE EVENT DATE: 20150701
